FAERS Safety Report 22247258 (Version 1)
Quarter: 2023Q2

REPORT INFORMATION
  Report Type: Spontaneous
  Country: US (occurrence: US)
  Receive Date: 20230424
  Receipt Date: 20230424
  Transmission Date: 20230721
  Serious: Yes (Death, Hospitalization, Other)
  Sender: FDA-Public Use
  Company Number: US-BRISTOL-MYERS SQUIBB COMPANY-2023-054805

PATIENT
  Age: 67 Year
  Sex: Male

DRUGS (1)
  1. LENALIDOMIDE [Suspect]
     Active Substance: LENALIDOMIDE
     Indication: Angioimmunoblastic T-cell lymphoma
     Dosage: FREQ:21

REACTIONS (6)
  - Renal cancer [Fatal]
  - Nasopharyngitis [Unknown]
  - Hiccups [Unknown]
  - Dehydration [Unknown]
  - Dysphagia [Unknown]
  - Off label use [Unknown]
